FAERS Safety Report 9471878 (Version 2)
Quarter: 2013Q3

REPORT INFORMATION
  Report Type: Spontaneous
  Country: ES (occurrence: ES)
  Receive Date: 20130823
  Receipt Date: 20130904
  Transmission Date: 20140515
  Serious: Yes (Hospitalization)
  Sender: FDA-Public Use
  Company Number: ES-PFIZER INC-2013240766

PATIENT
  Sex: Female

DRUGS (9)
  1. PREVENCOR [Suspect]
     Dosage: 40 MG, UNK
     Dates: end: 2013
  2. PREVENCOR [Suspect]
     Dosage: 80 MG, UNK
     Dates: start: 2013
  3. PRIMPERAN [Concomitant]
  4. ADIRO [Concomitant]
  5. PARIET [Concomitant]
  6. MASDIL [Concomitant]
     Indication: HYPERTENSION
  7. ORFIDAL [Concomitant]
     Dosage: UNK, AT NIGHT
  8. NITROGLICERIN [Concomitant]
  9. DILTIAZEM [Concomitant]
     Dosage: UNK

REACTIONS (5)
  - Acute myocardial infarction [Not Recovered/Not Resolved]
  - Pain in extremity [Not Recovered/Not Resolved]
  - Muscular weakness [Not Recovered/Not Resolved]
  - Mobility decreased [Not Recovered/Not Resolved]
  - Blood creatine phosphokinase increased [Not Recovered/Not Resolved]
